FAERS Safety Report 7435336-3 (Version None)
Quarter: 2011Q2

REPORT INFORMATION
  Report Type: 
  Country: None (occurrence: None)
  Receive Date: 20110425
  Receipt Date: 20110418
  Transmission Date: 20111010
  Serious: Yes (Hospitalization)
  Sender: FDA-Public Use
  Company Number: A0923363A

PATIENT
  Age: 32 Year
  Sex: Male

DRUGS (2)
  1. NO CONCURRENT MEDICATION [Concomitant]
  2. RELENZA [Suspect]
     Dosage: 1BLS TWICE PER DAY
     Route: 055
     Dates: start: 20110411, end: 20110411

REACTIONS (8)
  - HYPOAESTHESIA [None]
  - WHITE BLOOD CELL COUNT DECREASED [None]
  - CHEILITIS [None]
  - SCAB [None]
  - POOR PERIPHERAL CIRCULATION [None]
  - PAIN IN EXTREMITY [None]
  - UNDERDOSE [None]
  - CYANOSIS [None]
